FAERS Safety Report 8409600-5 (Version None)
Quarter: 2012Q2

REPORT INFORMATION
  Report Type: 
  Country: None (occurrence: None)
  Receive Date: 20120531
  Receipt Date: 20120531
  Transmission Date: 20120825
  Serious: Yes (Other)
  Sender: FDA-Public Use
  Company Number: None

PATIENT
  Sex: Female
  Weight: 71.2147 kg

DRUGS (1)
  1. DIVALPROEX EXTENDED-RELEASE [Suspect]
     Indication: CONVULSION
     Dosage: 250 MG 1 BID ORAL
     Route: 048
     Dates: start: 20120401

REACTIONS (2)
  - CONVULSION [None]
  - NAUSEA [None]
